FAERS Safety Report 7112299-1 (Version None)
Quarter: 2010Q4

REPORT INFORMATION
  Report Type: 
  Country: None (occurrence: None)
  Receive Date: 20101119
  Receipt Date: 20100614
  Transmission Date: 20110411
  Serious: No
  Sender: FDA-Public Use
  Company Number: A0865027A

PATIENT
  Age: 66 Year
  Sex: Male

DRUGS (3)
  1. AVODART [Suspect]
     Indication: BENIGN PROSTATIC HYPERPLASIA
     Dosage: 1CAP PER DAY
     Route: 048
     Dates: start: 20100301
  2. FLOMAX [Concomitant]
  3. MOBIC [Concomitant]

REACTIONS (1)
  - SEMEN DISCOLOURATION [None]
